FAERS Safety Report 4287308-8 (Version None)
Quarter: 2004Q1

REPORT INFORMATION
  Report Type: 
  Country: None (occurrence: None)
  Receive Date: 20040205
  Receipt Date: 20040123
  Transmission Date: 20041129
  Serious: No
  Sender: FDA-Public Use
  Company Number: 04H-163-0248962-00

PATIENT
  Sex: Female

DRUGS (1)
  1. DEMEROL [Suspect]
     Dosage: INTRAVENOUS
     Route: 042
     Dates: start: 20040122, end: 20040122

REACTIONS (3)
  - MEDICATION ERROR [None]
  - OVERDOSE [None]
  - SYNCOPE [None]
